FAERS Safety Report 10028803 (Version 1)
Quarter: 2014Q1

REPORT INFORMATION
  Report Type: Report from Study
  Country: US (occurrence: US)
  Receive Date: 20140321
  Receipt Date: 20140321
  Transmission Date: 20141002
  Serious: Yes (Other)
  Sender: FDA-Public Use
  Company Number: US-PURDUE-USA-2014-0112313

PATIENT
  Age: 59 Year
  Sex: Male

DRUGS (1)
  1. OXY CR TAB [Suspect]
     Indication: PAIN
     Dosage: 20 MG, Q12H
     Route: 048
     Dates: start: 20140313

REACTIONS (3)
  - Colorectal cancer metastatic [Unknown]
  - Pain [Unknown]
  - Inadequate analgesia [Unknown]
